FAERS Safety Report 17217984 (Version 1)
Quarter: 2019Q4

REPORT INFORMATION
  Report Type: Spontaneous
  Country: DE (occurrence: DE)
  Receive Date: 20191231
  Receipt Date: 20191231
  Transmission Date: 20200122
  Serious: Yes (Hospitalization, Other)
  Sender: FDA-Public Use
  Company Number: DE-ALVOGEN-2019-ALVOGEN-102228

PATIENT
  Age: 52 Year
  Sex: Female
  Weight: 77 kg

DRUGS (3)
  1. FLECAINIDE [Suspect]
     Active Substance: FLECAINIDE
     Indication: ATRIAL FIBRILLATION
     Dosage: PIP(PILL-IN-POCKET)
     Route: 048
  2. FLECAINIDE [Suspect]
     Active Substance: FLECAINIDE
     Indication: ATRIAL FIBRILLATION
     Dosage: PIP(PILL-IN-POCKET)
  3. FLECAINIDE [Suspect]
     Active Substance: FLECAINIDE
     Indication: ATRIAL FIBRILLATION
     Dosage: PIP(PILL-IN-POCKET)
     Route: 048

REACTIONS (5)
  - Ejection fraction decreased [Recovered/Resolved]
  - Cardiogenic shock [Recovered/Resolved]
  - Hypotonia [Recovered/Resolved]
  - Cardiac failure acute [Recovered/Resolved]
  - Drug ineffective [Unknown]
